FAERS Safety Report 11810194 (Version 4)
Quarter: 2015Q4

REPORT INFORMATION
  Report Type: Spontaneous
  Country: FR (occurrence: FR)
  Receive Date: 20151208
  Receipt Date: 20151228
  Transmission Date: 20160305
  Serious: Yes (Death, Other)
  Sender: FDA-Public Use
  Company Number: FR-TEVA-615458ISR

PATIENT
  Age: 70 Year
  Sex: Female
  Weight: 44 kg

DRUGS (8)
  1. AUGMENTIN [Concomitant]
     Active Substance: AMOXICILLIN\CLAVULANATE POTASSIUM
     Dosage: 3 GRAM DAILY;
     Route: 042
     Dates: start: 20150830, end: 20150902
  2. TEVAGRASTIM 48 MIU/0.8ML [Suspect]
     Active Substance: FILGRASTIM
     Indication: FEBRILE NEUTROPENIA
     Dosage: 34000 IU (INTERNATIONAL UNIT) DAILY;
     Route: 058
     Dates: start: 20150828, end: 20150902
  3. XARELTO [Concomitant]
     Active Substance: RIVAROXABAN
     Indication: ATRIAL FIBRILLATION
     Route: 048
  4. AMOXICILLINE [Concomitant]
     Active Substance: AMOXICILLIN
     Indication: BACTERAEMIA
     Dosage: 3 DOSAGE FORMS DAILY;
     Route: 042
     Dates: start: 20150902, end: 20150904
  5. CIPROFLOXACINE [Concomitant]
     Active Substance: CIPROFLOXACIN
     Dosage: 400 MILLIGRAM DAILY;
     Route: 042
     Dates: start: 20150830, end: 20150902
  6. FLUCONAZOLE. [Concomitant]
     Active Substance: FLUCONAZOLE
     Dosage: 400 MILLIGRAM DAILY;
     Route: 042
     Dates: start: 20150904
  7. GENTAMICINE [Concomitant]
     Active Substance: GENTAMICIN
     Indication: BACTERAEMIA
     Dosage: 150 MILLIGRAM DAILY;
     Route: 042
     Dates: start: 20150902, end: 20150904
  8. FLUCONAZOLE. [Concomitant]
     Active Substance: FLUCONAZOLE
     Indication: SYSTEMIC CANDIDA
     Route: 042
     Dates: start: 20150830, end: 20150904

REACTIONS (6)
  - Streptococcus test positive [None]
  - Neutropenia [Unknown]
  - Drug ineffective [Fatal]
  - Enterococcus test positive [None]
  - Candida infection [Unknown]
  - Pyrexia [Unknown]

NARRATIVE: CASE EVENT DATE: 20150828
